FAERS Safety Report 9771092 (Version 2)
Quarter: 2014Q1

REPORT INFORMATION
  Report Type: Spontaneous
  Country: US (occurrence: US)
  Receive Date: 20131218
  Receipt Date: 20140127
  Transmission Date: 20141002
  Serious: Yes (Other)
  Sender: FDA-Public Use
  Company Number: US-PFIZER INC-2013362351

PATIENT
  Sex: Female

DRUGS (1)
  1. LYRICA [Suspect]
     Dosage: 150 MG, 3X/DAY

REACTIONS (5)
  - Musculoskeletal disorder [Unknown]
  - Tibia fracture [Unknown]
  - Fibula fracture [Unknown]
  - Arthropathy [Unknown]
  - Bone disorder [Unknown]
